FAERS Safety Report 9883612 (Version 2)
Quarter: 2014Q1

REPORT INFORMATION
  Report Type: Spontaneous
  Country: ZA (occurrence: ZA)
  Receive Date: 20140210
  Receipt Date: 20140210
  Transmission Date: 20141002
  Serious: Yes (Death, Other)
  Sender: FDA-Public Use
  Company Number: ZA-ROCHE-1340024

PATIENT
  Age: 48 Year
  Sex: Male

DRUGS (4)
  1. MIRCERA [Suspect]
     Indication: NEPHROGENIC ANAEMIA
     Route: 058
     Dates: start: 20110720
  2. MIRCERA [Suspect]
     Route: 058
     Dates: start: 20110810
  3. MIRCERA [Suspect]
     Route: 058
     Dates: start: 20120209
  4. MIRCERA [Suspect]
     Dosage: DATE OF LAST DOSE WAS REPORTED TO BE 09/DEC/2013
     Route: 058
     Dates: start: 20120711

REACTIONS (3)
  - Death [Fatal]
  - Chest pain [Unknown]
  - Circulatory collapse [Unknown]
